FAERS Safety Report 15623675 (Version 3)
Quarter: 2018Q4

REPORT INFORMATION
  Report Type: Spontaneous
  Country: BR (occurrence: BR)
  Receive Date: 20181115
  Receipt Date: 20181206
  Transmission Date: 20190205
  Serious: Yes (Other)
  Sender: FDA-Public Use
  Company Number: BR-009507513-1811BRA005737

PATIENT
  Age: 40 Year
  Sex: Male

DRUGS (5)
  1. JANUVIA [Suspect]
     Active Substance: SITAGLIPTIN PHOSPHATE
     Indication: TYPE 1 DIABETES MELLITUS
     Dosage: 50 MG DAILY
     Route: 048
     Dates: start: 20180830, end: 20180903
  2. VITAMIN D [Concomitant]
     Active Substance: CHOLECALCIFEROL
  3. INSULIN DEGLUDEC [Concomitant]
     Active Substance: INSULIN DEGLUDEC
     Dosage: 9 UNITS DAILY
  4. JANUVIA [Suspect]
     Active Substance: SITAGLIPTIN PHOSPHATE
     Dosage: 25 MILLIGRAM
     Route: 048
     Dates: start: 20180922, end: 20180926
  5. INSULIN ASPART [Concomitant]
     Active Substance: INSULIN ASPART
     Dosage: 1 OR 2 UNITS DAILY

REACTIONS (6)
  - Dry mouth [Recovered/Resolved]
  - Polyuria [Recovered/Resolved]
  - Product use in unapproved indication [Unknown]
  - Thirst [Recovered/Resolved]
  - Diabetes insipidus [Unknown]
  - Polyuria [Recovered/Resolved]

NARRATIVE: CASE EVENT DATE: 20180830
